FAERS Safety Report 22211228 (Version 2)
Quarter: 2023Q2

REPORT INFORMATION
  Report Type: Spontaneous
  Country: DK (occurrence: DK)
  Receive Date: 20230414
  Receipt Date: 20230425
  Transmission Date: 20230721
  Serious: Yes (Hospitalization, Other)
  Sender: FDA-Public Use
  Company Number: DK-MankindUS-000059

PATIENT
  Age: 46 Year
  Sex: Female

DRUGS (6)
  1. BACLOFEN [Suspect]
     Active Substance: BACLOFEN
     Indication: Drug use disorder
     Dosage: FOUR TIMES THE HIGHEST RECOMMENDED DOSE
  2. CHLORZOXAZONE [Concomitant]
     Active Substance: CHLORZOXAZONE
     Indication: Headache
  3. LEVETIRACETAM [Concomitant]
     Active Substance: LEVETIRACETAM
     Indication: Headache
  4. PREGABALIN [Concomitant]
     Active Substance: PREGABALIN
     Indication: Headache
  5. CHLORDIAZEPOXIDE [Concomitant]
     Active Substance: CHLORDIAZEPOXIDE
     Dosage: IF NEEDED, 25 MG X 2
     Route: 048
  6. BACLOFEN [Suspect]
     Active Substance: BACLOFEN
     Indication: Drug use disorder
     Dosage: 400 MG IN THE PAST TWO WEEKS AND 650 MG IN THE PREVIOUS DAY

REACTIONS (7)
  - Unresponsive to stimuli [Unknown]
  - Myoclonus [Unknown]
  - Toxicity to various agents [Unknown]
  - Muscle spasms [Unknown]
  - Withdrawal syndrome [Unknown]
  - Delirium [Unknown]
  - Overdose [Unknown]
